FAERS Safety Report 4622357-9 (Version None)
Quarter: 2005Q1

REPORT INFORMATION
  Report Type: 
  Country: None (occurrence: None)
  Receive Date: 20050328
  Receipt Date: 20050314
  Transmission Date: 20050727
  Serious: Yes (Other)
  Sender: FDA-Public Use
  Company Number: 2005037917

PATIENT
  Age: 20 Year
  Sex: Female
  Weight: 61.6892 kg

DRUGS (3)
  1. DEPO-PROVERA [Suspect]
     Indication: CONTRACEPTION
     Dosage: 150 MG (150 MG, EVERY 11 WEEKS, FIRST INJECTION), INTRAMUSCULAR
     Route: 030
     Dates: start: 20010405, end: 20010405
  2. DEPO-PROVERA [Suspect]
     Indication: CONTRACEPTION
     Dosage: 150 MG (150 MG, EVERY 11 WEEKS, FIRST INJECTION), INTRAMUSCULAR
     Route: 030
     Dates: start: 20050101, end: 20050101
  3. IBUPROFEN [Concomitant]

REACTIONS (3)
  - CHOLELITHIASIS [None]
  - GASTROOESOPHAGEAL REFLUX DISEASE [None]
  - ULCER [None]
